FAERS Safety Report 4752492-6 (Version None)
Quarter: 2005Q3

REPORT INFORMATION
  Report Type: 
  Country: None (occurrence: None)
  Receive Date: 20050825
  Receipt Date: 20050816
  Transmission Date: 20060218
  Serious: Yes (Other)
  Sender: FDA-Public Use
  Company Number: GB-ROCHE-414347

PATIENT
  Age: 69 Year
  Sex: Female

DRUGS (3)
  1. CAPECITABINE [Suspect]
     Route: 048
     Dates: start: 20050517
  2. LAPATINIB [Suspect]
     Indication: BREAST CANCER
     Route: 048
     Dates: start: 20050517
  3. LAPATINIB [Suspect]
     Route: 048
     Dates: start: 20050803

REACTIONS (1)
  - EJECTION FRACTION DECREASED [None]
